FAERS Safety Report 9656030 (Version 1)
Quarter: 2013Q4

REPORT INFORMATION
  Report Type: Spontaneous
  Country: FR (occurrence: FR)
  Receive Date: 20131030
  Receipt Date: 20131030
  Transmission Date: 20140711
  Serious: Yes (Hospitalization, Other)
  Sender: FDA-Public Use
  Company Number: FR-CELGENEUS-056-21880-13104304

PATIENT
  Sex: Female

DRUGS (24)
  1. REVLIMID [Suspect]
     Indication: PLASMA CELL MYELOMA
     Route: 048
     Dates: start: 200903
  2. REVLIMID [Suspect]
     Dosage: 15 MILLIGRAM
     Route: 048
     Dates: start: 20101117
  3. REVLIMID [Suspect]
     Route: 048
     Dates: start: 20130422
  4. REVLIMID [Suspect]
     Dosage: 10 MILLIGRAM
     Route: 048
  5. DEXAMETHASONE [Concomitant]
     Indication: PLASMA CELL MYELOMA
     Route: 065
     Dates: start: 2005
  6. DEXAMETHASONE [Concomitant]
     Route: 065
     Dates: start: 200903
  7. DEXAMETHASONE [Concomitant]
     Route: 065
     Dates: start: 20110718
  8. DEXAMETHASONE [Concomitant]
     Route: 065
     Dates: start: 201202
  9. DEXAMETHASONE [Concomitant]
     Route: 065
     Dates: start: 20130422
  10. VELCADE [Concomitant]
     Indication: PLASMA CELL MYELOMA
     Route: 065
     Dates: start: 20110718
  11. VELCADE [Concomitant]
     Route: 065
     Dates: start: 200604
  12. VELCADE [Concomitant]
     Route: 065
     Dates: start: 201202
  13. VELCADE [Concomitant]
     Route: 065
     Dates: start: 20130422
  14. NEORECORMON [Concomitant]
     Indication: PRODUCT USED FOR UNKNOWN INDICATION
     Dosage: 30000 IU (INTERNATIONAL UNIT)
     Route: 065
  15. PLATELETS [Concomitant]
     Indication: PRODUCT USED FOR UNKNOWN INDICATION
     Route: 065
  16. PLATELETS [Concomitant]
     Route: 065
     Dates: start: 200604
  17. PACKED RED BLOOD CELLS [Concomitant]
     Indication: PRODUCT USED FOR UNKNOWN INDICATION
     Route: 065
  18. PACKED RED BLOOD CELLS [Concomitant]
     Route: 065
     Dates: start: 200604
  19. ASPEGIC [Concomitant]
     Indication: PRODUCT USED FOR UNKNOWN INDICATION
     Route: 065
  20. ASPEGIC [Concomitant]
     Route: 065
     Dates: start: 200604
  21. BACTRIM FORTE [Concomitant]
     Indication: PRODUCT USED FOR UNKNOWN INDICATION
     Route: 065
  22. BACTRIM FORTE [Concomitant]
     Route: 065
     Dates: start: 200604
  23. GRANOCYTE [Concomitant]
     Indication: PRODUCT USED FOR UNKNOWN INDICATION
     Route: 065
  24. GRANOCYTE [Concomitant]
     Route: 065
     Dates: start: 200604

REACTIONS (7)
  - Gastric ulcer [Unknown]
  - Platelet count decreased [Unknown]
  - Neutrophil count decreased [Unknown]
  - Lymphocyte count decreased [Unknown]
  - Haemoglobin decreased [Unknown]
  - Asthenia [Unknown]
  - Treatment failure [Unknown]
